FAERS Safety Report 9335123 (Version 1)
Quarter: 2013Q2

REPORT INFORMATION
  Report Type: Spontaneous
  Country: US (occurrence: US)
  Receive Date: 20130606
  Receipt Date: 20130606
  Transmission Date: 20140414
  Serious: Yes (Death)
  Sender: FDA-Public Use
  Company Number: US-GLAXOSMITHKLINE-A1025722A

PATIENT
  Age: 56 Year
  Sex: Male

DRUGS (1)
  1. PROMACTA [Suspect]
     Indication: PROSTATE CANCER
     Dosage: 50MG PER DAY
     Route: 048

REACTIONS (1)
  - Death [Fatal]
